FAERS Safety Report 8428552-5 (Version None)
Quarter: 2012Q2

REPORT INFORMATION
  Report Type: 
  Country: None (occurrence: None)
  Receive Date: 20120606
  Receipt Date: 20120606
  Transmission Date: 20120825
  Serious: Yes (Death)
  Sender: FDA-Public Use
  Company Number: None

PATIENT
  Age: 82 Year
  Sex: Male
  Weight: 72.5755 kg

DRUGS (1)
  1. ACTOS [Suspect]

REACTIONS (5)
  - LAZINESS [None]
  - CARDIAC FAILURE CONGESTIVE [None]
  - HYPOPHAGIA [None]
  - HIP FRACTURE [None]
  - COUGH [None]
